FAERS Safety Report 4592456-9 (Version None)
Quarter: 2005Q1

REPORT INFORMATION
  Report Type: 
  Country: None (occurrence: None)
  Receive Date: 20050222
  Receipt Date: 20050209
  Transmission Date: 20050727
  Serious: Yes (Life-Threatening)
  Sender: FDA-Public Use
  Company Number: RENA-11239

PATIENT
  Age: 54 Year
  Sex: Female

DRUGS (5)
  1. RENAGEL [Suspect]
     Indication: HYPERPHOSPHATAEMIA
     Dosage: 1 G TID PO
     Route: 048
     Dates: start: 20040918, end: 20041123
  2. CALTAN             (CALCIUM CARBONATE) [Suspect]
     Dates: start: 20040101, end: 20040916
  3. AMLODIN [Concomitant]
  4. SENNA [Concomitant]
  5. PANTOSIN [Concomitant]

REACTIONS (7)
  - BLOOD AMYLASE INCREASED [None]
  - CATHETER RELATED COMPLICATION [None]
  - CONSTIPATION [None]
  - GASTROINTESTINAL DISORDER [None]
  - ILEUS PARALYTIC [None]
  - INTESTINAL ISCHAEMIA [None]
  - INTESTINAL STENOSIS [None]
